FAERS Safety Report 25100245 (Version 1)
Quarter: 2025Q1

REPORT INFORMATION
  Report Type: Spontaneous
  Country: BE (occurrence: BE)
  Receive Date: 20250320
  Receipt Date: 20250320
  Transmission Date: 20250409
  Serious: Yes (Death, Life-Threatening, Other)
  Sender: AUROBINDO
  Company Number: BE-FAMHP-DHH-N2025-124239

PATIENT
  Age: 83 Year
  Sex: Female
  Weight: 60 kg

DRUGS (5)
  1. PIPERACILLIN SODIUM\TAZOBACTAM SODIUM [Suspect]
     Active Substance: PIPERACILLIN SODIUM\TAZOBACTAM SODIUM
     Indication: Pyrexia
     Dosage: 4 GRAM, 3 TIMES A DAY
     Route: 042
     Dates: start: 20250116, end: 20250119
  2. ACYCLOVIR SODIUM [Suspect]
     Active Substance: ACYCLOVIR SODIUM
     Indication: Encephalitis herpes
     Route: 042
     Dates: start: 20250117, end: 20250129
  3. KEPPRA [Suspect]
     Active Substance: LEVETIRACETAM
     Indication: Epilepsy
     Route: 042
     Dates: start: 20250119, end: 20250130
  4. ASPIRIN [Suspect]
     Active Substance: ASPIRIN
     Indication: Product used for unknown indication
     Route: 048
     Dates: end: 20250119
  5. LEVOTHYROXINE [Suspect]
     Active Substance: LEVOTHYROXINE
     Indication: Product used for unknown indication
     Route: 065
     Dates: end: 20250126

REACTIONS (2)
  - Anuria [Fatal]
  - Acute kidney injury [Fatal]

NARRATIVE: CASE EVENT DATE: 20250125
